FAERS Safety Report 6239270-6 (Version None)
Quarter: 2009Q2

REPORT INFORMATION
  Report Type: 
  Country: None (occurrence: None)
  Receive Date: 20090622
  Receipt Date: 20090609
  Transmission Date: 20091009
  Serious: Yes (Hospitalization, Other)
  Sender: FDA-Public Use
  Company Number: BR-ROCHE-630859

PATIENT
  Sex: Male

DRUGS (7)
  1. FUZEON [Suspect]
     Indication: ANTIRETROVIRAL THERAPY
     Route: 058
     Dates: start: 20080813, end: 20080826
  2. SAQUINAVIR [Suspect]
     Route: 065
  3. LAMIVUDINE [Concomitant]
  4. RITONAVIR [Concomitant]
     Indication: ANTIRETROVIRAL THERAPY
     Route: 048
     Dates: start: 20080813, end: 20090426
  5. MARAVIROC [Concomitant]
     Indication: ANTIRETROVIRAL THERAPY
     Route: 048
     Dates: start: 20080813, end: 20090428
  6. DARUNAVIR [Concomitant]
     Indication: ANTIRETROVIRAL THERAPY
     Dates: start: 20080813, end: 20090426
  7. RALTEGRAVIR [Concomitant]
     Indication: ANTIRETROVIRAL THERAPY
     Route: 048
     Dates: start: 20080813, end: 20090426

REACTIONS (16)
  - ABDOMINAL PAIN [None]
  - ANAEMIA [None]
  - ANTINUCLEAR ANTIBODY POSITIVE [None]
  - BLOOD ALKALINE PHOSPHATASE INCREASED [None]
  - CARDIAC FAILURE CONGESTIVE [None]
  - CARDIAC OUTPUT INCREASED [None]
  - CD4 LYMPHOCYTES INCREASED [None]
  - DRUG INEFFECTIVE [None]
  - DYSPNOEA [None]
  - GENERALISED OEDEMA [None]
  - HEPATITIS [None]
  - IMMUNE RECONSTITUTION SYNDROME [None]
  - PLATELET COUNT [None]
  - PORPHYRIA [None]
  - RETINAL DETACHMENT [None]
  - RETINITIS [None]
